FAERS Safety Report 17134053 (Version 2)
Quarter: 2020Q3

REPORT INFORMATION
  Report Type: Report from Study
  Country: US (occurrence: US)
  Receive Date: 20191210
  Receipt Date: 20200711
  Transmission Date: 20201102
  Serious: No
  Sender: FDA-Public Use
  Company Number: NVSC2019US064290

PATIENT
  Age: 81 Year
  Sex: Male

DRUGS (1)
  1. BEOVU [Suspect]
     Active Substance: BROLUCIZUMAB-DBLL
     Indication: NEOVASCULAR AGE-RELATED MACULAR DEGENERATION
     Dosage: UNK, ONCE/SINGLE
     Route: 050
     Dates: start: 20191119

REACTIONS (1)
  - Intra-ocular injection complication [Unknown]

NARRATIVE: CASE EVENT DATE: 20191205
